FAERS Safety Report 24431636 (Version 1)
Quarter: 2024Q4

REPORT INFORMATION
  Report Type: Spontaneous
  Country: CA (occurrence: CA)
  Receive Date: 20241014
  Receipt Date: 20241014
  Transmission Date: 20250114
  Serious: Yes (Other)
  Sender: ROCHE
  Company Number: CA-ROCHE-10000102421

PATIENT
  Age: 71 Year
  Sex: Male

DRUGS (32)
  1. SOMATROPIN [Suspect]
     Active Substance: SOMATROPIN
     Indication: Growth hormone deficiency
     Route: 058
  2. AMLODIPINE BESYLATE [Concomitant]
     Active Substance: AMLODIPINE BESYLATE
  3. ASPIRIN COMPOUND [ACETYLSALICYLIC ACID;ASCORBIC ACID] [Concomitant]
  4. BASAGLAR [Concomitant]
     Active Substance: INSULIN GLARGINE
  5. BISACODYL [Concomitant]
     Active Substance: BISACODYL
  6. CANDESARTAN [Concomitant]
     Active Substance: CANDESARTAN
  7. CANNABIS SATIVA FLOWERING TOP [Concomitant]
     Active Substance: CANNABIS SATIVA FLOWERING TOP
  8. CETIRIZINE HYDROCHLORIDE [Concomitant]
     Active Substance: CETIRIZINE HYDROCHLORIDE
  9. CLOBETASOL [Concomitant]
     Active Substance: CLOBETASOL
  10. DIAZEPAM [Concomitant]
     Active Substance: DIAZEPAM
  11. LEVOTHYROXINE [Concomitant]
     Active Substance: LEVOTHYROXINE
  12. GABAPENTIN [Concomitant]
     Active Substance: GABAPENTIN
  13. GLUCOBAY [Concomitant]
     Active Substance: ACARBOSE
  14. GLUMETZA [Concomitant]
     Active Substance: METFORMIN HYDROCHLORIDE
  15. HYDROCORTISONE ACETATE [Concomitant]
     Active Substance: HYDROCORTISONE ACETATE
  16. HYDROMORPHONE [Concomitant]
     Active Substance: HYDROMORPHONE
  17. LANTUS [Concomitant]
     Active Substance: INSULIN GLARGINE
  18. LIOTHYRONINE SODIUM [Concomitant]
     Active Substance: LIOTHYRONINE SODIUM
  19. MAGNESIUM GLYCINATE [Concomitant]
     Active Substance: MAGNESIUM GLYCINATE
  20. METFORMIN [Concomitant]
     Active Substance: METFORMIN HYDROCHLORIDE
  21. METOPROLOL [Concomitant]
     Active Substance: METOPROLOL
  22. N-ACETYL CYSTEINE BIOCARE [Concomitant]
  23. OLMESARTAN MEDOXOMIL [Concomitant]
     Active Substance: OLMESARTAN MEDOXOMIL
  24. ROSUVASTATIN CALCIUM [Concomitant]
     Active Substance: ROSUVASTATIN CALCIUM
  25. SYNTHROID [Concomitant]
     Active Substance: LEVOTHYROXINE SODIUM
  26. NALOXONE HYDROCHLORIDE\OXYCODONE HYDROCHLORIDE [Concomitant]
     Active Substance: NALOXONE HYDROCHLORIDE\OXYCODONE HYDROCHLORIDE
  27. PANTOPRAZOLE MAGNESIUM [Concomitant]
     Active Substance: PANTOPRAZOLE MAGNESIUM
  28. TESTOSTERONE [Concomitant]
     Active Substance: TESTOSTERONE
  29. TICAGRELOR [Concomitant]
     Active Substance: TICAGRELOR
  30. VITAMIN B COMPLEX [Concomitant]
     Active Substance: CYANOCOBALAMIN\DEXPANTHENOL\NIACINAMIDE\PYRIDOXINE HYDROCHLORIDE\RIBOFLAVIN 5^-PHOSPHATE SODIUM\THIA
  31. CHOLECALCIFEROL [Concomitant]
     Active Substance: CHOLECALCIFEROL
  32. ZANTAC [Concomitant]
     Active Substance: RANITIDINE HYDROCHLORIDE

REACTIONS (2)
  - Fall [Unknown]
  - Fracture [Unknown]
